FAERS Safety Report 9257606 (Version 1)
Quarter: 2013Q2

REPORT INFORMATION
  Report Type: Spontaneous
  Country: HR (occurrence: HR)
  Receive Date: 20130426
  Receipt Date: 20130426
  Transmission Date: 20140414
  Serious: Yes (Life-Threatening, Other)
  Sender: FDA-Public Use
  Company Number: HR-JNJFOC-20130411420

PATIENT
  Age: 44 Year
  Sex: Female
  Weight: 92 kg

DRUGS (17)
  1. REMICADE [Suspect]
     Indication: COLITIS ULCERATIVE
     Route: 042
     Dates: start: 20120912
  2. REMICADE [Suspect]
     Indication: COLITIS ULCERATIVE
     Route: 042
     Dates: start: 20120118
  3. REMICADE [Suspect]
     Indication: COLITIS ULCERATIVE
     Route: 042
     Dates: start: 20130227
  4. REMICADE [Suspect]
     Indication: COLITIS ULCERATIVE
     Route: 042
     Dates: start: 20130116
  5. REMICADE [Suspect]
     Indication: COLITIS ULCERATIVE
     Route: 042
     Dates: start: 20121205
  6. REMICADE [Suspect]
     Indication: COLITIS ULCERATIVE
     Route: 042
     Dates: start: 20121024
  7. REMICADE [Suspect]
     Indication: COLITIS ULCERATIVE
     Route: 042
     Dates: start: 20120201
  8. REMICADE [Suspect]
     Indication: COLITIS ULCERATIVE
     Route: 042
     Dates: start: 20120801
  9. REMICADE [Suspect]
     Indication: COLITIS ULCERATIVE
     Route: 042
     Dates: start: 20130411, end: 20130411
  10. REMICADE [Suspect]
     Indication: COLITIS ULCERATIVE
     Route: 042
     Dates: start: 20120620
  11. REMICADE [Suspect]
     Indication: COLITIS ULCERATIVE
     Route: 042
     Dates: start: 20120229
  12. REMICADE [Suspect]
     Indication: COLITIS ULCERATIVE
     Route: 042
     Dates: start: 20120425
  13. DECORTIN [Concomitant]
     Indication: COLITIS ULCERATIVE
     Route: 048
     Dates: start: 20120201, end: 20120425
  14. DECORTIN [Concomitant]
     Indication: COLITIS ULCERATIVE
     Route: 048
     Dates: start: 201112, end: 20120201
  15. DECORTIN [Concomitant]
     Indication: COLITIS ULCERATIVE
     Dosage: DOSE: REPORTED AS 2,5MG
     Route: 048
     Dates: start: 20120425, end: 20120510
  16. FOLACIN [Concomitant]
     Indication: COLITIS ULCERATIVE
     Route: 048
  17. CONTROLOC [Concomitant]
     Indication: COLITIS ULCERATIVE
     Dosage: GASTRO-RESISTANT TABLETS
     Route: 048

REACTIONS (11)
  - Weight decreased [Unknown]
  - Iron deficiency anaemia [Unknown]
  - Bronchospasm [Recovered/Resolved]
  - Urticaria [Recovered/Resolved]
  - Scleral discolouration [Recovered/Resolved]
  - Dysphonia [Not Recovered/Not Resolved]
  - Infusion related reaction [Not Recovered/Not Resolved]
  - Lip swelling [Unknown]
  - Hypoaesthesia oral [Unknown]
  - Burning sensation [Unknown]
  - Colitis ulcerative [Unknown]
